FAERS Safety Report 6263302-2 (Version None)
Quarter: 2009Q3

REPORT INFORMATION
  Report Type: 
  Country: None (occurrence: None)
  Receive Date: 20090710
  Receipt Date: 20090409
  Transmission Date: 20100115
  Serious: No
  Sender: FDA-Public Use
  Company Number: A0775900A

PATIENT
  Age: 47 Year
  Sex: Female
  Weight: 47.7 kg

DRUGS (2)
  1. REQUIP XL [Suspect]
     Indication: PARKINSON'S DISEASE
     Dosage: 4MG PER DAY
     Route: 048
     Dates: start: 20081101
  2. NO CONCURRENT MEDICATION [Concomitant]

REACTIONS (1)
  - VISUAL IMPAIRMENT [None]
